FAERS Safety Report 20677939 (Version 2)
Quarter: 2022Q2

REPORT INFORMATION
  Report Type: Spontaneous
  Country: US (occurrence: US)
  Receive Date: 20220406
  Receipt Date: 20220415
  Transmission Date: 20220720
  Serious: No
  Sender: FDA-Public Use
  Company Number: US-ORGANON-O2204USA000326

PATIENT
  Age: 39 Year
  Sex: Female
  Weight: 106.12 kg

DRUGS (2)
  1. NEXPLANON [Suspect]
     Active Substance: ETONOGESTREL
     Dosage: 1 IMPLANT OF 68 MG
     Dates: start: 20220325, end: 20220325
  2. NEXPLANON [Concomitant]
     Active Substance: ETONOGESTREL
     Dosage: UNK
     Route: 059
     Dates: end: 20220325

REACTIONS (3)
  - Complication of device insertion [Recovered/Resolved]
  - Product quality issue [Unknown]
  - No adverse event [Unknown]

NARRATIVE: CASE EVENT DATE: 20220325
